FAERS Safety Report 26086759 (Version 1)
Quarter: 2025Q4

REPORT INFORMATION
  Report Type: Spontaneous
  Country: US (occurrence: None)
  Receive Date: 20251124
  Receipt Date: 20251124
  Transmission Date: 20260118
  Serious: Yes (Other)
  Sender: FDA-CTU
  Company Number: None

PATIENT
  Age: 51 Year
  Sex: Female
  Weight: 68.4 kg

DRUGS (1)
  1. CELECOXIB [Suspect]
     Active Substance: CELECOXIB
     Indication: Hip surgery

REACTIONS (10)
  - Incision site swelling [None]
  - Induration [None]
  - Sensory loss [None]
  - Peripheral swelling [None]
  - Swelling face [None]
  - Peripheral swelling [None]
  - Skin tightness [None]
  - Fluid retention [None]
  - Arteriospasm coronary [None]
  - Myocardial infarction [None]

NARRATIVE: CASE EVENT DATE: 20251118
